FAERS Safety Report 14728036 (Version 1)
Quarter: 2018Q2

REPORT INFORMATION
  Report Type: Spontaneous
  Country: US (occurrence: US)
  Receive Date: 20180405
  Receipt Date: 20180405
  Transmission Date: 20180711
  Serious: No
  Sender: FDA-Public Use
  Company Number: None

PATIENT
  Age: 85 Year
  Sex: Female

DRUGS (1)
  1. REVLIMID [Suspect]
     Active Substance: LENALIDOMIDE
     Indication: MYELODYSPLASTIC SYNDROME
     Route: 048
     Dates: start: 20150808, end: 20150828

REACTIONS (5)
  - Stomatitis [None]
  - Fatigue [None]
  - Somnolence [None]
  - Incontinence [None]
  - Diarrhoea [None]

NARRATIVE: CASE EVENT DATE: 20150908
